FAERS Safety Report 17980582 (Version 1)
Quarter: 2020Q3

REPORT INFORMATION
  Report Type: Spontaneous
  Country: CN (occurrence: CN)
  Receive Date: 20200704
  Receipt Date: 20200704
  Transmission Date: 20201104
  Serious: Yes (Death, Other)
  Sender: FDA-Public Use
  Company Number: CN-SUN PHARMACEUTICAL INDUSTRIES LTD-2020R1-252021

PATIENT
  Age: 56 Year
  Sex: Male

DRUGS (7)
  1. ETOPOSIDE. [Suspect]
     Active Substance: ETOPOSIDE
     Indication: SMALL CELL CARCINOMA
     Dosage: UNK
     Route: 065
  2. ICOTINIB [Suspect]
     Active Substance: ICOTINIB
     Indication: SMALL CELL CARCINOMA
     Dosage: 125 MILLIGRAM, TID
     Route: 065
     Dates: start: 201711
  3. DOCETAXEL. [Suspect]
     Active Substance: DOCETAXEL
     Indication: SMALL CELL CARCINOMA
     Dosage: UNK
     Route: 065
  4. CARBOPLATIN. [Suspect]
     Active Substance: CARBOPLATIN
     Indication: SMALL CELL CARCINOMA
     Dosage: UNK
     Route: 065
     Dates: start: 201804
  5. IRINOTECAN [Suspect]
     Active Substance: IRINOTECAN
     Indication: SMALL CELL CARCINOMA
     Dosage: UNK
     Route: 065
  6. CATEQUENTINIB. [Suspect]
     Active Substance: CATEQUENTINIB
     Indication: SMALL CELL CARCINOMA
     Dosage: UNK
     Route: 065
  7. PEMBROLIZUMAB. [Suspect]
     Active Substance: PEMBROLIZUMAB
     Indication: SMALL CELL CARCINOMA
     Dosage: UNK
     Route: 065

REACTIONS (4)
  - Pancreatitis [Recovered/Resolved]
  - Neoplasm progression [Fatal]
  - Thyroiditis [Recovered/Resolved]
  - Myocarditis [Recovered/Resolved]
